FAERS Safety Report 12470476 (Version 3)
Quarter: 2016Q3

REPORT INFORMATION
  Report Type: Spontaneous
  Country: US (occurrence: US)
  Receive Date: 20160616
  Receipt Date: 20160923
  Transmission Date: 20161109
  Serious: Yes (Hospitalization, Other)
  Sender: FDA-Public Use
  Company Number: US-PFIZER INC-2016293830

PATIENT
  Age: 72 Year
  Sex: Female

DRUGS (2)
  1. IBRANCE [Suspect]
     Active Substance: PALBOCICLIB
     Indication: NEUROPATHY PERIPHERAL
  2. IBRANCE [Suspect]
     Active Substance: PALBOCICLIB
     Indication: BREAST CANCER STAGE IV
     Dosage: 125 MG, CYCLIC (FO 21 DAYS, 7DAYS OFF)
     Route: 048
     Dates: start: 20160501, end: 20160615

REACTIONS (5)
  - Pancytopenia [Recovering/Resolving]
  - Dyspnoea [Recovering/Resolving]
  - Thrombocytopenia [Recovered/Resolved]
  - Contusion [Recovering/Resolving]
  - Cardiac failure congestive [Recovering/Resolving]

NARRATIVE: CASE EVENT DATE: 2016
